FAERS Safety Report 9833013 (Version 2)
Quarter: 2014Q1

REPORT INFORMATION
  Report Type: Spontaneous
  Country: US (occurrence: US)
  Receive Date: 20140121
  Receipt Date: 20140304
  Transmission Date: 20141002
  Serious: Yes (Other)
  Sender: FDA-Public Use
  Company Number: US-PFIZER INC-2014016324

PATIENT
  Age: 84 Year
  Sex: Female

DRUGS (2)
  1. PREMARIN [Suspect]
     Dosage: UNK
  2. XANAX [Concomitant]
     Dosage: UNK

REACTIONS (5)
  - Hypothyroidism [Unknown]
  - Hypertension [Unknown]
  - Cardiac disorder [Unknown]
  - Heart rate irregular [Unknown]
  - Vulvovaginal burning sensation [Unknown]
